FAERS Safety Report 13586424 (Version 3)
Quarter: 2020Q3

REPORT INFORMATION
  Report Type: Report from Study
  Country: UA (occurrence: UA)
  Receive Date: 20170526
  Receipt Date: 20171211
  Transmission Date: 20201105
  Serious: Yes (Death, Life-Threatening, Hospitalization, Other)
  Sender: FDA-Public Use
  Company Number: UA-ASTRAZENECA-2017SE52420

PATIENT
  Age: 21056 Day
  Sex: Female

DRUGS (16)
  1. CORAXAN (IVABRADINE HYDROCHLORIDE) [Concomitant]
     Active Substance: IVABRADINE HYDROCHLORIDE
     Indication: METABOLIC CARDIOMYOPATHY
     Route: 048
     Dates: start: 20170328
  2. METHYLPREDNISOLONE. [Concomitant]
     Active Substance: METHYLPREDNISOLONE
     Indication: DIARRHOEA
     Route: 042
     Dates: start: 20170515
  3. SODIUM CHLORID [Concomitant]
     Indication: PROPHYLAXIS
     Route: 042
     Dates: start: 20170513, end: 20170514
  4. TREMELIMUMAB. [Suspect]
     Active Substance: TREMELIMUMAB
     Indication: SMALL CELL LUNG CANCER EXTENSIVE STAGE
     Route: 042
     Dates: start: 20170329, end: 20170329
  5. METHYLPREDNISOLONE. [Concomitant]
     Active Substance: METHYLPREDNISOLONE
     Indication: DIARRHOEA
     Route: 042
     Dates: start: 20170513, end: 20170514
  6. SODIUM CHLORID [Concomitant]
     Indication: PROPHYLAXIS
     Route: 042
     Dates: start: 20170515
  7. ASCORBIC ACID. [Concomitant]
     Active Substance: ASCORBIC ACID
     Indication: FATIGUE
     Route: 042
     Dates: start: 20170513, end: 20170514
  8. MEDI4736 [Suspect]
     Active Substance: DURVALUMAB
     Indication: SMALL CELL LUNG CANCER EXTENSIVE STAGE
     Route: 042
     Dates: start: 20170329, end: 20170329
  9. MEDI4736 [Suspect]
     Active Substance: DURVALUMAB
     Indication: SMALL CELL LUNG CANCER EXTENSIVE STAGE
     Route: 042
     Dates: start: 20170426, end: 20170426
  10. PREDUCTAL MR [Concomitant]
     Active Substance: TRIMETAZIDINE DIHYDROCHLORIDE
     Indication: METABOLIC CARDIOMYOPATHY
     Route: 048
     Dates: start: 20170328
  11. REOSORBILACT [Concomitant]
     Indication: PROPHYLAXIS
     Route: 042
     Dates: start: 20170515
  12. ASCORBIC ACID. [Concomitant]
     Active Substance: ASCORBIC ACID
     Indication: FATIGUE
     Route: 042
     Dates: start: 20170515
  13. REOSORBILACT [Concomitant]
     Indication: PROPHYLAXIS
     Route: 042
     Dates: start: 20170512, end: 20170514
  14. GLUCOSE SOLUTION [Concomitant]
     Active Substance: DEXTROSE
     Indication: FATIGUE
     Route: 042
     Dates: start: 20170513, end: 20170514
  15. LOPERAMIDE [Concomitant]
     Active Substance: LOPERAMIDE
     Indication: FATIGUE
     Route: 048
     Dates: start: 20170515
  16. TREMELIMUMAB. [Suspect]
     Active Substance: TREMELIMUMAB
     Indication: SMALL CELL LUNG CANCER EXTENSIVE STAGE
     Route: 042
     Dates: start: 20170426, end: 20170426

REACTIONS (2)
  - Enterocolitis haemorrhagic [Fatal]
  - Diarrhoea [Recovered/Resolved]

NARRATIVE: CASE EVENT DATE: 20170515
